FAERS Safety Report 9905500 (Version 1)
Quarter: 2013Q2

REPORT INFORMATION
  Report Type: Spontaneous
  Country: US (occurrence: None)
  Receive Date: 20130627
  Receipt Date: 20130627
  Transmission Date: 20140414
  Serious: No
  Sender: FDA-Public Use
  Company Number: 1000044278

PATIENT
  Age: 84 Year
  Sex: Female

DRUGS (7)
  1. LINZESS (LINACLOTIDE) (290 MICROGRAM, CAPSULES) [Suspect]
     Indication: IRRITABLE BOWEL SYNDROME
     Route: 048
     Dates: start: 20130327, end: 20130407
  2. LINZESS (LINACLOTIDE) (290 MICROGRAM, CAPSULES) [Suspect]
     Indication: IRRITABLE BOWEL SYNDROME
     Route: 048
     Dates: start: 20130411
  3. LINZESS (LINACLOTIDE) (290 MICROGRAM, CAPSULES) [Suspect]
     Indication: CONSTIPATION
     Route: 048
     Dates: start: 20130411
  4. SOTALOL (SOTALOL) (SOTALOL) [Concomitant]
  5. LISINOPRIL (LISINOPRIL) (LISINOPRIL) [Concomitant]
  6. BYSTOLIC (NEBIVOLOL HYDROCHLORIDE) (NEBIVOLOL HYDROCHLORIDE) [Concomitant]
  7. ASPIRIN (ACETYLSALICYLIC ACID) (ACETYLSALICYLIC ACID) [Concomitant]

REACTIONS (1)
  - Diarrhoea [None]
